FAERS Safety Report 20638547 (Version 2)
Quarter: 2022Q2

REPORT INFORMATION
  Report Type: Spontaneous
  Country: US (occurrence: US)
  Receive Date: 20220325
  Receipt Date: 20220615
  Transmission Date: 20220721
  Serious: No
  Sender: FDA-Public Use
  Company Number: US-BRISTOL-MYERS SQUIBB COMPANY-2022-010498

PATIENT
  Age: 86 Year
  Sex: Female
  Weight: 44.45 kg

DRUGS (1)
  1. REVLIMID [Suspect]
     Active Substance: LENALIDOMIDE
     Indication: Lymphoma
     Dosage: 15MG, QD, 21D ON OF 28 DAY CYCLE
     Route: 048

REACTIONS (2)
  - Constipation [Unknown]
  - Adverse event [Unknown]
